FAERS Safety Report 9423262 (Version 1)
Quarter: 2013Q3

REPORT INFORMATION
  Report Type: Spontaneous
  Country: US (occurrence: US)
  Receive Date: 20130726
  Receipt Date: 20130726
  Transmission Date: 20140515
  Serious: Yes (Other)
  Sender: FDA-Public Use
  Company Number: US-TEVA-415086USA

PATIENT
  Age: 26 Year
  Sex: Female

DRUGS (5)
  1. PARAGARD 380A [Suspect]
     Indication: CONTRACEPTION
     Route: 015
     Dates: start: 20111205
  2. PLAQUENIL [Concomitant]
     Indication: SYSTEMIC LUPUS ERYTHEMATOSUS
  3. PREDNISONE [Concomitant]
     Indication: SYSTEMIC LUPUS ERYTHEMATOSUS
  4. HYDROCORTISONE [Concomitant]
     Indication: SYSTEMIC LUPUS ERYTHEMATOSUS
  5. CLORTRIMAZOLE [Concomitant]
     Indication: VAGINAL DISORDER

REACTIONS (2)
  - Device dislocation [Not Recovered/Not Resolved]
  - Vaginal disorder [Not Recovered/Not Resolved]
